FAERS Safety Report 7164659-0 (Version None)
Quarter: 2010Q4

REPORT INFORMATION
  Report Type: 
  Country: None (occurrence: None)
  Receive Date: 20101215
  Receipt Date: 20101208
  Transmission Date: 20110411
  Serious: Yes (Other)
  Sender: FDA-Public Use
  Company Number: JP-SANOFI-AVENTIS-2010SA068948

PATIENT
  Age: 30 Year
  Sex: Female
  Weight: 67 kg

DRUGS (10)
  1. AMARYL [Suspect]
     Indication: DIABETES MELLITUS
     Dosage: EVERY MORNING
     Route: 048
     Dates: start: 20100818, end: 20101112
  2. HIRNAMIN [Suspect]
     Indication: DEPRESSION
     Route: 048
     Dates: start: 20100805
  3. CYMBALTA [Concomitant]
     Indication: DEPRESSION
     Dosage: EVERY MORNING
     Route: 048
     Dates: start: 20100805
  4. ACINON [Concomitant]
     Dosage: EVERY MORNING AND EVENING
     Route: 048
     Dates: start: 20100805
  5. ROZEREM [Concomitant]
     Indication: INSOMNIA
     Route: 048
     Dates: start: 20100805
  6. LENDORMIN [Concomitant]
     Indication: INSOMNIA
     Route: 048
     Dates: start: 20100805
  7. DEPAKENE [Concomitant]
     Route: 048
     Dates: start: 20100805
  8. SOLANAX [Concomitant]
     Indication: DEPRESSION
     Route: 048
     Dates: start: 20100805
  9. SULPIRIDE [Concomitant]
     Indication: DEPRESSION
     Route: 048
     Dates: start: 20100805
  10. METFORMIN HYDROCHLORIDE [Concomitant]
     Indication: DIABETES MELLITUS
     Route: 048
     Dates: start: 20100929

REACTIONS (3)
  - FACE OEDEMA [None]
  - PHOTOSENSITIVITY REACTION [None]
  - RASH [None]
